FAERS Safety Report 25104181 (Version 1)
Quarter: 2025Q1

REPORT INFORMATION
  Report Type: Spontaneous
  Country: US (occurrence: None)
  Receive Date: 20250320
  Receipt Date: 20250320
  Transmission Date: 20250409
  Serious: Yes (Hospitalization)
  Sender: FDA-CTU
  Company Number: None

PATIENT
  Age: 50 Year
  Sex: Female

DRUGS (1)
  1. AMBRISENTAN [Suspect]
     Active Substance: AMBRISENTAN
     Indication: Pulmonary hypertension
     Dosage: FREQUENCY : DAILY;?
     Route: 048
     Dates: start: 20230308, end: 20250225

REACTIONS (4)
  - Enterocolitis [None]
  - Viral infection [None]
  - Ventricular fibrillation [None]
  - Cardio-respiratory arrest [None]

NARRATIVE: CASE EVENT DATE: 20250211
